FAERS Safety Report 7784982-6 (Version None)
Quarter: 2011Q3

REPORT INFORMATION
  Report Type: 
  Country: None (occurrence: None)
  Receive Date: 20110928
  Receipt Date: 20110914
  Transmission Date: 20111222
  Serious: Yes (Hospitalization, Other)
  Sender: FDA-Public Use
  Company Number: PHHY2011US07876

PATIENT
  Sex: Female

DRUGS (5)
  1. BETASERON [Concomitant]
     Dosage: 0.3 MG, UNK
  2. NUVIGIL [Concomitant]
     Dosage: 150 MG, UNK
     Route: 048
     Dates: start: 20101221
  3. ANTIVERT [Concomitant]
     Dosage: 25 MG, TID
  4. LIORESAL [Concomitant]
     Dosage: 10 MG, TID
  5. GILENYA [Suspect]
     Indication: MULTIPLE SCLEROSIS
     Dosage: 0.5 MG, QD
     Route: 048
     Dates: start: 20101228, end: 20110622

REACTIONS (29)
  - WHITE BLOOD CELL COUNT DECREASED [None]
  - DIARRHOEA [None]
  - DECREASED APPETITE [None]
  - BLOOD GLUCOSE INCREASED [None]
  - MALAISE [None]
  - ASTHENIA [None]
  - EOSINOPHIL COUNT DECREASED [None]
  - INFLUENZA LIKE ILLNESS [None]
  - PAIN [None]
  - BLOOD AMYLASE DECREASED [None]
  - MYALGIA [None]
  - PYREXIA [None]
  - RED BLOOD CELL COUNT DECREASED [None]
  - RED CELL DISTRIBUTION WIDTH INCREASED [None]
  - PLATELET COUNT DECREASED [None]
  - BLOOD CALCIUM DECREASED [None]
  - HYPERHIDROSIS [None]
  - HAEMOGLOBIN DECREASED [None]
  - MEAN CELL HAEMOGLOBIN DECREASED [None]
  - BLOOD ALBUMIN DECREASED [None]
  - SINUSITIS [None]
  - LYMPHOCYTE COUNT DECREASED [None]
  - MONOCYTE COUNT DECREASED [None]
  - CHILLS [None]
  - BLOOD ALKALINE PHOSPHATASE INCREASED [None]
  - HAEMATOCRIT DECREASED [None]
  - BLOOD SODIUM DECREASED [None]
  - ABDOMINAL DISCOMFORT [None]
  - FEELING ABNORMAL [None]
